FAERS Safety Report 23436545 (Version 1)
Quarter: 2024Q1

REPORT INFORMATION
  Report Type: Spontaneous
  Country: US (occurrence: None)
  Receive Date: 20240124
  Receipt Date: 20240124
  Transmission Date: 20240410
  Serious: Yes (Other)
  Sender: FDA-Public Use
  Company Number: US-ARIS GLOBAL-SUP202310-003929

PATIENT
  Age: 12 Year
  Sex: Male
  Weight: 63.95 kg

DRUGS (2)
  1. QELBREE [Suspect]
     Active Substance: VILOXAZINE HYDROCHLORIDE
     Indication: Product used for unknown indication
     Route: 048
     Dates: start: 20230930
  2. GUANFACINE [Concomitant]
     Active Substance: GUANFACINE
     Dosage: NOT PROVIDED

REACTIONS (1)
  - Suicidal ideation [Recovered/Resolved]
